FAERS Safety Report 9286992 (Version 2)
Quarter: 2013Q2

REPORT INFORMATION
  Report Type: Spontaneous
  Country: US (occurrence: US)
  Receive Date: 20130513
  Receipt Date: 20130617
  Transmission Date: 20140414
  Serious: No
  Sender: FDA-Public Use
  Company Number: US-PFIZER INC-2013142635

PATIENT
  Age: 46 Year
  Sex: Female

DRUGS (3)
  1. BOSULIF [Suspect]
     Indication: CHRONIC MYELOID LEUKAEMIA
     Dosage: 500 MG, 1X/DAY
     Dates: start: 20130503, end: 20130515
  2. FIORICET [Concomitant]
     Indication: HEADACHE
     Dosage: UNK, AS NEEDED
  3. XANAX [Concomitant]
     Dosage: UNK, AS NEEDED

REACTIONS (1)
  - Diarrhoea [Recovering/Resolving]
